FAERS Safety Report 7409793-2 (Version None)
Quarter: 2011Q2

REPORT INFORMATION
  Report Type: 
  Country: None (occurrence: None)
  Receive Date: 20110412
  Receipt Date: 20110328
  Transmission Date: 20111010
  Serious: Yes (Life-Threatening, Other)
  Sender: FDA-Public Use
  Company Number: GB-GENENTECH-316021

PATIENT
  Age: 63 Year
  Sex: Male
  Weight: 86.8 kg

DRUGS (1)
  1. XOLAIR [Suspect]
     Indication: ASTHMA
     Dosage: 600 MG, UNK
     Route: 058
     Dates: start: 20101119, end: 20101203

REACTIONS (1)
  - ANAPHYLACTIC REACTION [None]
